FAERS Safety Report 24407451 (Version 1)
Quarter: 2024Q4

REPORT INFORMATION
  Report Type: Spontaneous
  Country: JP (occurrence: JP)
  Receive Date: 20241007
  Receipt Date: 20241007
  Transmission Date: 20250115
  Serious: Yes (Other)
  Sender: ABBVIE
  Company Number: JP-ABBVIE-5950573

PATIENT
  Sex: Female

DRUGS (1)
  1. RINVOQ [Suspect]
     Active Substance: UPADACITINIB
     Indication: Product used for unknown indication
     Route: 048
     Dates: start: 202309

REACTIONS (4)
  - Spinal operation [Unknown]
  - Rubella antibody positive [Unknown]
  - Weight increased [Unknown]
  - Mumps antibody test positive [Unknown]

NARRATIVE: CASE EVENT DATE: 20240601
